FAERS Safety Report 12130479 (Version 1)
Quarter: 2016Q1

REPORT INFORMATION
  Report Type: Spontaneous
  Country: US (occurrence: None)
  Receive Date: 20160229
  Receipt Date: 20160229
  Transmission Date: 20160526
  Serious: Yes (Life-Threatening, Disabling)
  Sender: FDA-Public Use
  Company Number: None

PATIENT
  Age: 69 Year
  Sex: Female
  Weight: 46.72 kg

DRUGS (3)
  1. IMOTREX [Concomitant]
  2. VICODIN [Concomitant]
     Active Substance: ACETAMINOPHEN\HYDROCODONE BITARTRATE
  3. PROLIA [Suspect]
     Active Substance: DENOSUMAB
     Indication: OSTEOPOROSIS PROPHYLAXIS
     Dosage: INJECTION EVERY 6 MONTHS

REACTIONS (7)
  - Vomiting [None]
  - Headache [None]
  - Pain in jaw [None]
  - Back pain [None]
  - Pain in extremity [None]
  - Blood calcium decreased [None]
  - Hyperhidrosis [None]

NARRATIVE: CASE EVENT DATE: 20160227
